FAERS Safety Report 8337244-2 (Version None)
Quarter: 2012Q2

REPORT INFORMATION
  Report Type: 
  Country: None (occurrence: None)
  Receive Date: 20120504
  Receipt Date: 20120501
  Transmission Date: 20120825
  Serious: Yes (Hospitalization)
  Sender: FDA-Public Use
  Company Number: US-AMGEN-USASP2011055904

PATIENT
  Age: 50 Year
  Sex: Female

DRUGS (7)
  1. ACLOVATE [Concomitant]
     Dosage: UNK
  2. MOBIC [Concomitant]
     Dosage: UNK
     Route: 048
  3. DYAZIDE [Concomitant]
     Dosage: UNK
     Route: 048
  4. ENBREL [Suspect]
     Indication: PSORIASIS
     Dosage: 50 MG, QWK
     Route: 058
     Dates: start: 20071003
  5. SINGULAIR [Concomitant]
     Dosage: UNK
     Route: 048
  6. PREVACID [Concomitant]
     Dosage: UNK
     Route: 048
  7. LEXAPRO [Concomitant]
     Dosage: UNK
     Route: 048

REACTIONS (6)
  - DIARRHOEA [None]
  - NAUSEA [None]
  - VOMITING [None]
  - ARTHROPATHY [None]
  - PSORIATIC ARTHROPATHY [None]
  - PYREXIA [None]
